FAERS Safety Report 21649312 (Version 1)
Quarter: 2022Q4

REPORT INFORMATION
  Report Type: Report from Study
  Country: MX (occurrence: MX)
  Receive Date: 20221128
  Receipt Date: 20221128
  Transmission Date: 20230113
  Serious: Yes (Other)
  Sender: FDA-Public Use
  Company Number: MX-002147023-NVSC2022MX275242

PATIENT
  Age: 70 Year
  Sex: Female
  Weight: 57 kg

DRUGS (4)
  1. ENTRESTO [Suspect]
     Active Substance: SACUBITRIL\VALSARTAN
     Indication: Cardiac disorder
     Dosage: 1 DOSAGE FORM, QD
     Route: 048
     Dates: start: 202209
  2. EMPAGLIFLOZIN [Concomitant]
     Active Substance: EMPAGLIFLOZIN
     Indication: Cardiovascular event prophylaxis
     Dosage: 1 DOSAGE FORM, QD
     Route: 048
     Dates: start: 202209
  3. APIXABAN [Concomitant]
     Active Substance: APIXABAN
     Indication: Thrombosis prophylaxis
     Dosage: 1 DOSAGE FORM, QD
     Route: 048
     Dates: start: 202209
  4. OXYGEN [Concomitant]
     Active Substance: OXYGEN
     Indication: Product used for unknown indication
     Dosage: UNK
     Route: 065

REACTIONS (2)
  - Pulmonary oedema [Unknown]
  - Off label use [Not Recovered/Not Resolved]

NARRATIVE: CASE EVENT DATE: 20220901
